FAERS Safety Report 8571548-3 (Version None)
Quarter: 2012Q3

REPORT INFORMATION
  Report Type: 
  Country: None (occurrence: None)
  Receive Date: 20120806
  Receipt Date: 20120730
  Transmission Date: 20120928
  Serious: Yes (Other)
  Sender: FDA-Public Use
  Company Number: PHHY2010JP39616

PATIENT
  Age: 64 Year
  Sex: Male

DRUGS (3)
  1. IMATINIB MESYLATE [Suspect]
     Dosage: 300 MG DAILY
     Route: 048
  2. SUNITINIB MALATE [Suspect]
     Dosage: 50MG/DAY
  3. IMATINIB MESYLATE [Suspect]
     Indication: GASTROINTESTINAL STROMAL TUMOUR
     Dosage: 400 MG DAILY
     Route: 048

REACTIONS (5)
  - DRUG RESISTANCE [None]
  - METASTASES TO PERITONEUM [None]
  - METASTASES TO LIVER [None]
  - HEPATIC FUNCTION ABNORMAL [None]
  - NEOPLASM RECURRENCE [None]
